FAERS Safety Report 26151928 (Version 1)
Quarter: 2025Q4

REPORT INFORMATION
  Report Type: Spontaneous
  Country: CA (occurrence: CA)
  Receive Date: 20251214
  Receipt Date: 20251214
  Transmission Date: 20260117
  Serious: Yes (Other)
  Sender: HIKMA
  Company Number: CA-HIKMA PHARMACEUTICALS USA INC.-CA-H14001-25-12869

PATIENT
  Age: 84 Year
  Sex: Male

DRUGS (1)
  1. CYANOCOBALAMIN [Suspect]
     Active Substance: CYANOCOBALAMIN
     Indication: Product used for unknown indication
     Dosage: 1 MILLIGRAM PER MILLILITRE, MONTHLY
     Route: 030

REACTIONS (2)
  - Myelopathy [Not Recovered/Not Resolved]
  - Pain in extremity [Not Recovered/Not Resolved]
